FAERS Safety Report 4954053-2 (Version None)
Quarter: 2006Q1

REPORT INFORMATION
  Report Type: 
  Country: None (occurrence: None)
  Receive Date: 20060323
  Receipt Date: 20060323
  Transmission Date: 20060701
  Serious: No
  Sender: FDA-Public Use
  Company Number: None

PATIENT

DRUGS (4)
  1. INFED [Suspect]
  2. DEXFERRUM [Suspect]
  3. FERRLECIT [Suspect]
  4. VENOFER [Suspect]

REACTIONS (3)
  - ANAPHYLACTIC REACTION [None]
  - MEDICATION ERROR [None]
  - WRONG DRUG ADMINISTERED [None]
